FAERS Safety Report 5289446-X (Version None)
Quarter: 2007Q2

REPORT INFORMATION
  Report Type: 
  Country: None (occurrence: None)
  Receive Date: 20070406
  Receipt Date: 20070326
  Transmission Date: 20071010
  Serious: Yes (Hospitalization)
  Sender: FDA-Public Use
  Company Number: US-AMGEN-US217903

PATIENT
  Sex: Male
  Weight: 77.2 kg

DRUGS (9)
  1. PROCRIT [Suspect]
     Indication: ANAEMIA
     Dates: start: 20070301, end: 20070301
  2. INDERAL [Concomitant]
  3. METOPROLOL SUCCINATE [Concomitant]
  4. LIPITOR [Concomitant]
  5. FERROUS SULFATE [Concomitant]
  6. NEXIUM [Concomitant]
  7. MYLANTA [Concomitant]
  8. MILK OF MAGNESIA [Concomitant]
  9. DARVOCET-N 100 [Concomitant]

REACTIONS (5)
  - CARDIAC OPERATION [None]
  - EPISTAXIS [None]
  - FEELING HOT [None]
  - MALAISE [None]
  - VENOUS THROMBOSIS [None]
